FAERS Safety Report 4850484-X (Version None)
Quarter: 2005Q4

REPORT INFORMATION
  Report Type: 
  Country: None (occurrence: None)
  Receive Date: 20051123
  Receipt Date: 20051013
  Transmission Date: 20060501
  Serious: Yes (Hospitalization)
  Sender: FDA-Public Use
  Company Number: 218632

PATIENT
  Age: 62 Year
  Sex: Female

DRUGS (1)
  1. RAPTIVA [Suspect]

REACTIONS (1)
  - THROMBOCYTOPENIA [None]
